FAERS Safety Report 10039376 (Version 1)
Quarter: 2014Q1

REPORT INFORMATION
  Report Type: Report from Study
  Country: DE (occurrence: DE)
  Receive Date: 20140326
  Receipt Date: 20140326
  Transmission Date: 20141002
  Serious: Yes (Disabling)
  Sender: FDA-Public Use
  Company Number: PHHY2014DE035210

PATIENT
  Sex: Male
  Weight: 3 kg

DRUGS (1)
  1. FTY 720 [Suspect]
     Dosage: MATERNAL DOSE: 0.5 MG QD
     Route: 064

REACTIONS (2)
  - Congenital hydronephrosis [Unknown]
  - Foetal exposure during pregnancy [Unknown]
